FAERS Safety Report 5816679-3 (Version None)
Quarter: 2008Q3

REPORT INFORMATION
  Report Type: 
  Country: None (occurrence: None)
  Receive Date: 20080721
  Receipt Date: 20080714
  Transmission Date: 20090109
  Serious: Yes (Other)
  Sender: FDA-Public Use
  Company Number: US-TYCO HEALTHCARE/MALLINCKRODT-T200801155

PATIENT

DRUGS (1)
  1. METHADOSE [Suspect]
     Route: 042

REACTIONS (1)
  - HYPOGLYCAEMIA [None]
